FAERS Safety Report 21735724 (Version 1)
Quarter: 2022Q4

REPORT INFORMATION
  Report Type: Report from Study
  Country: US (occurrence: US)
  Receive Date: 20221215
  Receipt Date: 20221215
  Transmission Date: 20230112
  Serious: Yes (Hospitalization, Other)
  Sender: FDA-Public Use
  Company Number: US-TAKEDA-2022TUS095170

PATIENT
  Age: 8 Year
  Sex: Male

DRUGS (20)
  1. TEDUGLUTIDE [Suspect]
     Active Substance: TEDUGLUTIDE
     Indication: Short-bowel syndrome
     Route: 042
  2. TEDUGLUTIDE [Suspect]
     Active Substance: TEDUGLUTIDE
     Indication: Short-bowel syndrome
     Route: 042
  3. TEDUGLUTIDE [Suspect]
     Active Substance: TEDUGLUTIDE
     Indication: Short-bowel syndrome
     Route: 042
  4. TEDUGLUTIDE [Suspect]
     Active Substance: TEDUGLUTIDE
     Indication: Short-bowel syndrome
     Route: 042
  5. CHOLESTYRAMINE [Concomitant]
     Active Substance: CHOLESTYRAMINE
     Indication: Diarrhoea
     Dosage: 0.5 DOSAGE FORM, TID
     Route: 050
     Dates: start: 20150316
  6. LEVSIN [Concomitant]
     Active Substance: HYOSCYAMINE SULFATE
     Indication: Abdominal pain
     Dosage: 0.13 MILLIGRAM
     Route: 048
     Dates: start: 20150519
  7. CALCIUM CARBONATE [Concomitant]
     Active Substance: CALCIUM CARBONATE
     Indication: Abdominal discomfort
     Dosage: 1 DOSAGE FORM, QD
     Route: 048
     Dates: start: 20150519
  8. VANCOMYCIN [Concomitant]
     Active Substance: VANCOMYCIN
     Indication: Vascular device infection
     Dosage: 300 MILLIGRAM, QID
     Route: 042
     Dates: start: 20160516, end: 20160524
  9. VANCOMYCIN [Concomitant]
     Active Substance: VANCOMYCIN
     Dosage: 630 MILLIGRAM, TID
     Route: 042
     Dates: start: 20181018, end: 20181101
  10. VANCOMYCIN [Concomitant]
     Active Substance: VANCOMYCIN
     Dosage: 365 MILLIGRAM, TID
     Route: 042
     Dates: start: 20190213, end: 20190227
  11. VANCOMYCIN [Concomitant]
     Active Substance: VANCOMYCIN
     Dosage: 365 MILLIGRAM, TID
     Route: 042
     Dates: start: 20190514, end: 20190528
  12. VANCOMYCIN [Concomitant]
     Active Substance: VANCOMYCIN
     Dosage: 365 MILLIGRAM, TID
     Route: 042
     Dates: start: 20200322, end: 20200405
  13. VANCOMYCIN [Concomitant]
     Active Substance: VANCOMYCIN
     Dosage: 365 MILLIGRAM, TID
     Route: 042
     Dates: start: 20200317, end: 20200331
  14. VANCOMYCIN [Concomitant]
     Active Substance: VANCOMYCIN
     Dosage: 365 MILLIGRAM, TID
     Route: 042
     Dates: start: 20210818, end: 20210825
  15. FLUCONAZOLE [Concomitant]
     Active Substance: FLUCONAZOLE
     Indication: Vascular device infection
     Dosage: 150 MILLIGRAM, QID
     Route: 042
     Dates: start: 20160718, end: 20160723
  16. FLUCONAZOLE [Concomitant]
     Active Substance: FLUCONAZOLE
     Dosage: 300 MILLIGRAM, QD
     Route: 042
     Dates: start: 20200421, end: 20200505
  17. NAFCILLIN [Concomitant]
     Active Substance: NAFCILLIN SODIUM
     Indication: Vascular device infection
     Dosage: 950 MILLIGRAM, QID
     Route: 042
     Dates: start: 20180222, end: 20180308
  18. NAFCILLIN [Concomitant]
     Active Substance: NAFCILLIN SODIUM
     Dosage: 700 MILLIGRAM, QID
     Route: 042
     Dates: start: 20181224, end: 20190105
  19. NAFCILLIN [Concomitant]
     Active Substance: NAFCILLIN SODIUM
     Dosage: 1000 MILLIGRAM, QID
     Route: 042
     Dates: start: 20210308, end: 20210322
  20. CEFEPIME [Concomitant]
     Active Substance: CEFEPIME HYDROCHLORIDE
     Indication: Vascular device infection
     Dosage: 850 MILLIGRAM, TID
     Route: 042
     Dates: start: 20180508, end: 20180522

REACTIONS (1)
  - Device related sepsis [Recovered/Resolved]

NARRATIVE: CASE EVENT DATE: 20200218
